FAERS Safety Report 6141439-6 (Version None)
Quarter: 2009Q2

REPORT INFORMATION
  Report Type: 
  Country: None (occurrence: None)
  Receive Date: 20090402
  Receipt Date: 20090330
  Transmission Date: 20091009
  Serious: Yes (Other)
  Sender: FDA-Public Use
  Company Number: US-MERCK-0903USA05523

PATIENT
  Age: 51 Year
  Sex: Female

DRUGS (6)
  1. VYTORIN [Suspect]
     Indication: BLOOD CHOLESTEROL
     Route: 048
     Dates: start: 20071129, end: 20080101
  2. METFORMIN [Concomitant]
     Route: 065
  3. GLYBURIDE [Concomitant]
     Route: 065
  4. ACTOS [Concomitant]
     Route: 065
  5. LANTUS [Concomitant]
     Route: 065
  6. HUMALOG [Concomitant]
     Route: 065

REACTIONS (1)
  - PARALYSIS [None]
